FAERS Safety Report 19705210 (Version 1)
Quarter: 2021Q3

REPORT INFORMATION
  Report Type: Spontaneous
  Country: US (occurrence: US)
  Receive Date: 20210816
  Receipt Date: 20210816
  Transmission Date: 20211014
  Serious: No
  Sender: FDA-Public Use
  Company Number: US-PFIZER INC-2021390839

PATIENT
  Age: 53 Year
  Sex: Female

DRUGS (1)
  1. PREMPRO [Suspect]
     Active Substance: ESTROGENS, CONJUGATED\MEDROXYPROGESTERONE ACETATE
     Indication: MENOPAUSAL SYMPTOMS
     Dosage: 2 TABS PO DAILY
     Route: 048

REACTIONS (5)
  - Weight increased [Unknown]
  - Off label use [Unknown]
  - Product dispensing error [Unknown]
  - Seasonal allergy [Unknown]
  - Insomnia [Unknown]
